FAERS Safety Report 6111647-9 (Version None)
Quarter: 2009Q1

REPORT INFORMATION
  Report Type: 
  Country: None (occurrence: None)
  Receive Date: 20090311
  Receipt Date: 20090228
  Transmission Date: 20090719
  Serious: Yes (Death)
  Sender: FDA-Public Use
  Company Number: IN-PFIZER INC-2009177079

PATIENT

DRUGS (9)
  1. MARAVIROC [Suspect]
     Indication: HIV INFECTION
     Dosage: 300 MG, 2X/DAY
     Route: 048
     Dates: start: 20080624, end: 20090829
  2. MARAVIROC [Suspect]
     Dosage: 600 MG, 2X/DAY
     Route: 048
     Dates: start: 20080830, end: 20081025
  3. MARAVIROC [Suspect]
     Dosage: 300 MG, 2X/DAY
     Route: 048
     Dates: start: 20081028, end: 20090222
  4. SULFAMETHOXAZOLE AND TRIMETHOPRIM [Concomitant]
     Route: 048
     Dates: start: 20020104
  5. COBADEX [Concomitant]
     Route: 048
     Dates: start: 20020104
  6. LIVOGEN [Concomitant]
     Route: 048
     Dates: start: 20020104
  7. ETHAMBUTOL [Concomitant]
     Route: 048
     Dates: start: 20081026
  8. PYRAZINAMIDE [Concomitant]
     Route: 048
     Dates: start: 20081211
  9. ALL OTHER THERAPEUTIC PRODUCTS [Concomitant]
     Route: 048
     Dates: start: 20080623

REACTIONS (1)
  - CHEST PAIN [None]
